FAERS Safety Report 8338427-8 (Version None)
Quarter: 2012Q2

REPORT INFORMATION
  Report Type: 
  Country: None (occurrence: None)
  Receive Date: 20120504
  Receipt Date: 20120425
  Transmission Date: 20120825
  Serious: Yes (Other)
  Sender: FDA-Public Use
  Company Number: JP-VERTEX PHARMACEUTICALS INC.-AE-2012-004095

PATIENT
  Age: 68 Year
  Sex: Male

DRUGS (5)
  1. PEGINTERFERON ALFA-2A [Concomitant]
     Indication: HEPATITIS C
     Route: 051
     Dates: start: 20120306
  2. TSUMARA JUZENTAIHOTO EXTRACT GRANULES [Concomitant]
     Route: 048
  3. TELAVIC (TELAPREVIR) [Suspect]
     Indication: HEPATITIS C
     Route: 048
     Dates: start: 20120306
  4. REBETOL [Concomitant]
     Indication: HEPATITIS C
     Route: 048
     Dates: start: 20120306, end: 20120416
  5. REBETOL [Concomitant]
     Route: 048
     Dates: start: 20120417

REACTIONS (11)
  - ANAEMIA [None]
  - RASH [None]
  - INDURATION [None]
  - PRURITUS [None]
  - DECREASED APPETITE [None]
  - RENAL IMPAIRMENT [None]
  - PLATELET COUNT DECREASED [None]
  - ERYTHEMA [None]
  - HYPERURICAEMIA [None]
  - LOSS OF CONSCIOUSNESS [None]
  - ECZEMA [None]
